FAERS Safety Report 8622963-0 (Version None)
Quarter: 2012Q3

REPORT INFORMATION
  Report Type: 
  Country: None (occurrence: None)
  Receive Date: 20120827
  Receipt Date: 20120824
  Transmission Date: 20120928
  Serious: Yes (Hospitalization)
  Sender: FDA-Public Use
  Company Number: PHFR2012GB004088

PATIENT
  Sex: Male

DRUGS (5)
  1. CLOZARIL [Suspect]
     Indication: PSYCHOTIC DISORDER
     Route: 048
     Dates: start: 20070627
  2. CLOZARIL [Suspect]
     Dosage: 350 MG,(150 MG MANE AND 200 MG NOTCHE)
     Route: 048
  3. PROCYCLIDINE HYDROCHLORIDE 2MG TAB [Concomitant]
     Indication: EXTRAPYRAMIDAL DISORDER
     Dosage: 10 MG, UNK
     Route: 048
  4. LITHIUM CARBONATE [Concomitant]
     Indication: NEUTROPENIA
     Dosage: 500 MG, UNK
     Route: 048
  5. VALPROATE SODIUM [Concomitant]
     Indication: CONVULSION
     Dosage: 1500 MG, UNK
     Route: 048

REACTIONS (1)
  - DIFFERENTIAL WHITE BLOOD CELL COUNT ABNORMAL [None]
